FAERS Safety Report 10032223 (Version 2)
Quarter: 2014Q1

REPORT INFORMATION
  Report Type: Spontaneous
  Country: IT (occurrence: IT)
  Receive Date: 20140324
  Receipt Date: 20140331
  Transmission Date: 20141002
  Serious: Yes (Other)
  Sender: FDA-Public Use
  Company Number: IT-TEVA-468746ISR

PATIENT
  Age: 25 Year
  Sex: Male

DRUGS (9)
  1. CISPLATIN [Suspect]
     Indication: GERM CELL CANCER
     Dosage: 20MG/M2 ON DAYS 1-5, 3 WEEK INTERVALS
     Route: 065
  2. CISPLATIN [Suspect]
     Indication: GERM CELL CANCER
     Dosage: 20MG/M2 ON DAYS 1-5
     Route: 065
  3. ETOPOSIDE [Suspect]
     Indication: GERM CELL CANCER
     Dosage: 100MG/M2 ON DAYS 1-5, 3 WEEK INTERVALS
     Route: 065
  4. ETOPOSIDE [Suspect]
     Indication: GERM CELL CANCER
     Dosage: 100MG/M2 ON DAYS 1-5
     Route: 065
  5. ETOPOSIDE [Suspect]
     Indication: GERM CELL CANCER
     Dosage: 1800MG/M2
     Route: 065
  6. CARBOPLATIN [Suspect]
     Indication: GERM CELL CANCER
     Dosage: AUC 20
     Route: 065
  7. CYCLOPHOSPHAMIDE [Suspect]
     Indication: GERM CELL CANCER
     Dosage: 6400MG/M2 DIVIDED INTO 4 DOSES ON DAYS 1, 2, 3 ,4
     Route: 065
  8. BLEOMYCIN [Concomitant]
     Indication: GERM CELL CANCER
     Dosage: 30IU DAYS 2, 9, 16 AT 3 WEEK INTERVALS
     Route: 065
  9. GRANULOCYTE-MACROPHAGE COLONY-STIMULATING FACTOR [Concomitant]
     Indication: GERM CELL CANCER
     Dosage: 5MICROG/KG/DAY
     Route: 065

REACTIONS (1)
  - Drug-induced liver injury [Recovered/Resolved]
